FAERS Safety Report 12898984 (Version 6)
Quarter: 2016Q4

REPORT INFORMATION
  Report Type: Report from Study
  Country: FR (occurrence: FR)
  Receive Date: 20161101
  Receipt Date: 20161221
  Transmission Date: 20170207
  Serious: Yes (Hospitalization, Other)
  Sender: FDA-Public Use
  Company Number: FR-AMGEN-FRANI2016151631

PATIENT
  Age: 71 Year
  Sex: Male

DRUGS (24)
  1. CARFILZOMIB [Suspect]
     Active Substance: CARFILZOMIB
     Dosage: 27 MG/M2, UNK
     Route: 065
     Dates: start: 2016, end: 2016
  2. ZELITREX [Concomitant]
     Active Substance: VALACYCLOVIR HYDROCHLORIDE
     Dosage: 1 DF, BID MORNING AND EVENING
  3. ELIQUIS [Concomitant]
     Active Substance: APIXABAN
     Dosage: 1 DF, BID
  4. LEVOTHYROX [Concomitant]
     Active Substance: LEVOTHYROXINE
     Dosage: 160 MUG, UNK IN THE MORNING
  5. ORACILLIN [Concomitant]
     Active Substance: PENICILLIN V BENZATHINE
     Dosage: 1 DF, BID MORNING AND EVENING
  6. DIFFU-K [Concomitant]
     Active Substance: POTASSIUM CHLORIDE
     Dosage: UNK,  IN THE MORNING, NOON AND EVENING
  7. CARFILZOMIB [Suspect]
     Active Substance: CARFILZOMIB
     Dosage: 16 MG/M2, UNK
     Route: 065
     Dates: start: 2016
  8. REVLIMID [Concomitant]
     Active Substance: LENALIDOMIDE
     Indication: PLASMA CELL MYELOMA
     Dosage: 25 MG, UNK
     Dates: start: 20160601, end: 2016
  9. DEXAMETHASONE. [Concomitant]
     Active Substance: DEXAMETHASONE
     Dosage: 40 MG, QWK
     Route: 048
     Dates: start: 20160921
  10. LASILIX [Concomitant]
     Active Substance: FUROSEMIDE
     Dosage: 40 MG, UNK IN MORNING
  11. PANTOPRAZOLE [Concomitant]
     Active Substance: PANTOPRAZOLE SODIUM
     Dosage: 1 DF, UNK IN THE EVENING
  12. COTAREG [Concomitant]
     Active Substance: HYDROCHLOROTHIAZIDE\VALSARTAN
  13. SPECIAFOLDINE [Concomitant]
     Active Substance: FOLIC ACID
     Dosage: 5 MG, UNK ON MONDAY, WEDNESDAY, FRIDAY
  14. DEXAMETHASONE. [Concomitant]
     Active Substance: DEXAMETHASONE
     Indication: PLASMA CELL MYELOMA
     Dosage: 20 MG, UNK
     Dates: start: 20160601
  15. BACTRIM [Concomitant]
     Active Substance: SULFAMETHOXAZOLE\TRIMETHOPRIM
     Dosage: 1 DF, UNK  IN THE MORNING ON MONDAY, WEDNESDAY, FRIDAY
  16. VALSARTAN. [Concomitant]
     Active Substance: VALSARTAN
     Dosage: 1/2 IN THE MORNING
  17. LYRICA [Concomitant]
     Active Substance: PREGABALIN
     Dosage: 50 MG, UNK MORNING AND EVENING
  18. ADENURIC [Concomitant]
     Active Substance: FEBUXOSTAT
     Dosage: 80 MG, UNK IN THE EVENING
  19. REVLIMID [Concomitant]
     Active Substance: LENALIDOMIDE
     Dosage: 25 MG, UNK
     Route: 048
     Dates: start: 20160914, end: 2016
  20. REVLIMID [Concomitant]
     Active Substance: LENALIDOMIDE
     Dosage: 15 MG, UNK
  21. BISOCE [Concomitant]
     Active Substance: BISOPROLOL
     Dosage: 1 DF, QD IN MORNING
  22. CARFILZOMIB [Suspect]
     Active Substance: CARFILZOMIB
     Indication: PLASMA CELL MYELOMA
     Dosage: UNK 20/27 MG/M2
     Route: 065
     Dates: start: 20160601, end: 2016
  23. CARFILZOMIB [Suspect]
     Active Substance: CARFILZOMIB
     Dosage: 60 UNK
     Route: 042
     Dates: start: 20160622, end: 2016
  24. DEXAMETHASONE. [Concomitant]
     Active Substance: DEXAMETHASONE
     Dosage: 40 MG, QWK
     Route: 048
     Dates: start: 20160914, end: 20160914

REACTIONS (4)
  - Pulmonary fibrosis [Unknown]
  - Lung infection [Unknown]
  - Diastolic dysfunction [Unknown]
  - Acute pulmonary oedema [Unknown]

NARRATIVE: CASE EVENT DATE: 2016
